FAERS Safety Report 4352253-6 (Version None)
Quarter: 2004Q2

REPORT INFORMATION
  Report Type: 
  Country: None (occurrence: None)
  Receive Date: 20040420
  Receipt Date: 20030502
  Transmission Date: 20050107
  Serious: Yes (Life-Threatening, Hospitalization)
  Sender: FDA-Public Use
  Company Number: K200301132

PATIENT
  Age: 45 Year
  Sex: Female

DRUGS (1)
  1. SKELAXIN [Suspect]
     Indication: MYALGIA
     Dosage: ORAL
     Route: 048
     Dates: start: 20030313, end: 20030406

REACTIONS (2)
  - ANAPHYLACTIC REACTION [None]
  - RASH GENERALISED [None]
